FAERS Safety Report 9822327 (Version 1)
Quarter: 2014Q1

REPORT INFORMATION
  Report Type: Report from Study
  Country: US (occurrence: US)
  Receive Date: 20140116
  Receipt Date: 20140116
  Transmission Date: 20141002
  Serious: Yes (Other)
  Sender: FDA-Public Use
  Company Number: US-JNJFOC-20140103810

PATIENT
  Sex: Male
  Weight: 79.38 kg

DRUGS (10)
  1. REMICADE [Suspect]
     Indication: ANKYLOSING SPONDYLITIS
     Dosage: EVERY 4 TO 5 WEEKS. INITIATED ABOUT 7 YEARS PRIOR TO THE DATE OF THIS REPORT.
     Route: 042
  2. REMICADE [Suspect]
     Indication: RHEUMATOID ARTHRITIS
     Dosage: EVERY 4 TO 5 WEEKS. INITIATED ABOUT 7 YEARS PRIOR TO THE DATE OF THIS REPORT.
     Route: 042
  3. METHOTREXATE [Concomitant]
     Indication: ANKYLOSING SPONDYLITIS
     Dosage: 20 MG TABLET.??STARTED 7 YEARS PRIOR TO THE DATE OF THIS REPORT.
     Route: 048
  4. METHOTREXATE [Concomitant]
     Indication: RHEUMATOID ARTHRITIS
     Dosage: 20 MG TABLET.??STARTED 7 YEARS PRIOR TO THE DATE OF THIS REPORT.
     Route: 048
  5. BENAZEPRIL W/HYDROCHLOROTHIAZIDE [Concomitant]
     Indication: HYPERTENSION
     Dosage: 20 TO 12.5 MG/TABLET/20 TO 20.5 MG/ONCE DAILY.
     Route: 048
  6. DOXAZOSIN [Concomitant]
     Indication: HYPERTENSION
     Route: 048
  7. FOLIC ACID [Concomitant]
     Indication: ANKYLOSING SPONDYLITIS
     Dosage: INITIATED ABOUT 7 YEARS PRIOR TO THE DATE OF THIS REPORT.
     Route: 048
  8. FOLIC ACID [Concomitant]
     Indication: RHEUMATOID ARTHRITIS
     Dosage: INITIATED ABOUT 7 YEARS PRIOR TO THE DATE OF THIS REPORT.
     Route: 048
  9. MULTIVITAMINS [Concomitant]
     Route: 065
  10. FINASTERIDE [Concomitant]
     Indication: PROSTATOMEGALY
     Route: 048
     Dates: start: 2008

REACTIONS (3)
  - Colon cancer [Not Recovered/Not Resolved]
  - Aortic aneurysm [Not Recovered/Not Resolved]
  - Blood urine present [Unknown]
